FAERS Safety Report 24046355 (Version 1)
Quarter: 2024Q3

REPORT INFORMATION
  Report Type: Spontaneous
  Country: NL (occurrence: NL)
  Receive Date: 20240703
  Receipt Date: 20240703
  Transmission Date: 20241016
  Serious: Yes (Hospitalization)
  Sender: FRESENIUS KABI
  Company Number: NL-GILEAD-2024-0677262

PATIENT
  Age: 49 Year
  Sex: Male
  Weight: 130 kg

DRUGS (25)
  1. GEMCITABINE HYDROCHLORIDE\OXALIPLATIN\RITUXIMAB [Suspect]
     Active Substance: GEMCITABINE HYDROCHLORIDE\OXALIPLATIN\RITUXIMAB
     Indication: Burkitt^s lymphoma
     Dosage: UNK
     Route: 065
     Dates: start: 20240430, end: 20240514
  2. GEMCITABINE HYDROCHLORIDE\OXALIPLATIN\RITUXIMAB [Suspect]
     Active Substance: GEMCITABINE HYDROCHLORIDE\OXALIPLATIN\RITUXIMAB
     Dosage: UNK
     Route: 065
     Dates: start: 20240430, end: 20240514
  3. GEMCITABINE HYDROCHLORIDE\OXALIPLATIN\RITUXIMAB [Suspect]
     Active Substance: GEMCITABINE HYDROCHLORIDE\OXALIPLATIN\RITUXIMAB
     Dosage: UNK
     Route: 065
     Dates: start: 20240430, end: 20240514
  4. BREXUCABTAGENE AUTOLEUCEL [Suspect]
     Active Substance: BREXUCABTAGENE AUTOLEUCEL
     Indication: Burkitt^s lymphoma
     Dosage: UNK?FORM: SUSPENSION
     Route: 042
     Dates: start: 20240613, end: 20240613
  5. CYCLOPHOSPHAMIDE [Suspect]
     Active Substance: CYCLOPHOSPHAMIDE
     Indication: Bone marrow conditioning regimen
     Dosage: ^1350^?FORM: POWDER FOR SOLUTION FOR INJECTION/INFUSION
     Route: 065
     Dates: start: 20240610, end: 20240610
  6. CYCLOPHOSPHAMIDE [Suspect]
     Active Substance: CYCLOPHOSPHAMIDE
     Dosage: ^1350^?FORM: POWDER FOR SOLUTION FOR INJECTION/INFUSION
     Route: 065
     Dates: start: 20240608, end: 20240608
  7. CYCLOPHOSPHAMIDE [Suspect]
     Active Substance: CYCLOPHOSPHAMIDE
     Dosage: ^1350^?FORM: POWDER FOR SOLUTION FOR INJECTION/INFUSION
     Route: 065
     Dates: start: 20240609, end: 20240609
  8. FLUDARABINE [Suspect]
     Active Substance: FLUDARABINE PHOSPHATE
     Indication: Bone marrow conditioning regimen
     Dosage: ^80^?FORM: INJECTION
     Route: 065
     Dates: start: 20240610, end: 20240610
  9. FLUDARABINE [Suspect]
     Active Substance: FLUDARABINE PHOSPHATE
     Dosage: ^80^?FORM: INJECTION
     Route: 065
     Dates: start: 20240608, end: 20240608
  10. FLUDARABINE [Suspect]
     Active Substance: FLUDARABINE PHOSPHATE
     Dosage: ^80^?FORM: INJECTION
     Route: 065
     Dates: start: 20240609, end: 20240609
  11. MESNA [Suspect]
     Active Substance: MESNA
     Indication: Prophylaxis
     Dosage: ^250^?FORM: SOLUTION FOR INJECTION/INFUSION
     Route: 065
     Dates: start: 20240609, end: 20240609
  12. MESNA [Suspect]
     Active Substance: MESNA
     Dosage: ^250^?FORM: SOLUTION FOR INJECTION/INFUSION
     Route: 065
     Dates: start: 20240608, end: 20240608
  13. MESNA [Suspect]
     Active Substance: MESNA
     Dosage: ^250^?FORM: SOLUTION FOR INJECTION/INFUSION
     Route: 065
     Dates: start: 20240610, end: 20240610
  14. MESNA [Suspect]
     Active Substance: MESNA
     Dosage: ^250^?FORM: SOLUTION FOR INJECTION/INFUSION
     Route: 065
     Dates: start: 20240609, end: 20240609
  15. MESNA [Suspect]
     Active Substance: MESNA
     Dosage: ^250^?FORM: SOLUTION FOR INJECTION/INFUSION
     Route: 065
     Dates: start: 20240610, end: 20240610
  16. MESNA [Suspect]
     Active Substance: MESNA
     Dosage: ^250^?FORM: SOLUTION FOR INJECTION/INFUSION
     Route: 065
     Dates: start: 20240608, end: 20240608
  17. GEMCITABINE HYDROCHLORIDE\OXALIPLATIN\RITUXIMAB [Suspect]
     Active Substance: GEMCITABINE HYDROCHLORIDE\OXALIPLATIN\RITUXIMAB
     Indication: Burkitt^s lymphoma
     Dosage: UNK
     Route: 065
     Dates: start: 20240430, end: 20240514
  18. GEMCITABINE HYDROCHLORIDE\OXALIPLATIN\RITUXIMAB [Suspect]
     Active Substance: GEMCITABINE HYDROCHLORIDE\OXALIPLATIN\RITUXIMAB
     Dosage: UNK
     Route: 065
     Dates: start: 20240430, end: 20240514
  19. GEMCITABINE HYDROCHLORIDE\OXALIPLATIN\RITUXIMAB [Suspect]
     Active Substance: GEMCITABINE HYDROCHLORIDE\OXALIPLATIN\RITUXIMAB
     Dosage: UNK
     Route: 065
     Dates: start: 20240430, end: 20240514
  20. GEMCITABINE HYDROCHLORIDE\OXALIPLATIN\RITUXIMAB [Suspect]
     Active Substance: GEMCITABINE HYDROCHLORIDE\OXALIPLATIN\RITUXIMAB
     Indication: Burkitt^s lymphoma
     Dosage: UNK
     Route: 065
     Dates: start: 20240430, end: 20240514
  21. GEMCITABINE HYDROCHLORIDE\OXALIPLATIN\RITUXIMAB [Suspect]
     Active Substance: GEMCITABINE HYDROCHLORIDE\OXALIPLATIN\RITUXIMAB
     Dosage: UNK
     Route: 065
     Dates: start: 20240430, end: 20240514
  22. GEMCITABINE HYDROCHLORIDE\OXALIPLATIN\RITUXIMAB [Suspect]
     Active Substance: GEMCITABINE HYDROCHLORIDE\OXALIPLATIN\RITUXIMAB
     Dosage: UNK
     Route: 065
     Dates: start: 20240430, end: 20240514
  23. PANTOPRAZOLE [Concomitant]
     Active Substance: PANTOPRAZOLE
     Indication: Product used for unknown indication
     Dosage: 40,MG,DAILY
     Route: 048
     Dates: start: 2024
  24. POLYETHYLENE GLYCOLS [Concomitant]
     Active Substance: POLYETHYLENE GLYCOLS
     Indication: Product used for unknown indication
     Dosage: 1,OTHER,AS NECESSARY
     Route: 048
     Dates: start: 2024
  25. OLANZAPINE [Concomitant]
     Active Substance: OLANZAPINE
     Indication: Product used for unknown indication
     Dosage: 2.5,MG,AS NECESSARY
     Route: 048
     Dates: start: 2024

REACTIONS (1)
  - Immune effector cell-associated neurotoxicity syndrome [Unknown]

NARRATIVE: CASE EVENT DATE: 20240618
